FAERS Safety Report 6215523-2 (Version None)
Quarter: 2009Q2

REPORT INFORMATION
  Report Type: 
  Country: None (occurrence: None)
  Receive Date: 20090604
  Receipt Date: 20090526
  Transmission Date: 20091009
  Serious: Yes (Hospitalization)
  Sender: FDA-Public Use
  Company Number: US-MYLANLABS-2009S1009300

PATIENT
  Age: 72 Year
  Sex: Male

DRUGS (8)
  1. PROPAFENONE HCL [Suspect]
     Indication: ARRHYTHMIA
     Route: 048
     Dates: start: 20090101, end: 20090301
  2. PROPAFENONE HCL [Suspect]
     Indication: ATRIAL FIBRILLATION
     Route: 048
     Dates: start: 20090101, end: 20090301
  3. PROPAFENONE HCL [Suspect]
     Route: 048
     Dates: start: 20090418, end: 20090418
  4. PROPAFENONE HCL [Suspect]
     Route: 048
     Dates: start: 20090418, end: 20090418
  5. DILTIAZEM HYDROCHLORIDE [Suspect]
     Indication: ARRHYTHMIA
     Route: 048
     Dates: start: 20090201, end: 20090301
  6. DILTIAZEM HYDROCHLORIDE [Suspect]
     Route: 048
     Dates: start: 20090418, end: 20090418
  7. METOPROLOL SUCCINATE [Concomitant]
  8. PLAVIX [Concomitant]

REACTIONS (6)
  - AZOTAEMIA [None]
  - BLOOD PRESSURE IMMEASURABLE [None]
  - BRADYCARDIA [None]
  - CARDIAC FAILURE CONGESTIVE [None]
  - FALL [None]
  - PULSE ABSENT [None]
